FAERS Safety Report 6191452-8 (Version None)
Quarter: 2009Q2

REPORT INFORMATION
  Report Type: 
  Country: None (occurrence: None)
  Receive Date: 20090515
  Receipt Date: 20090506
  Transmission Date: 20091009
  Serious: Yes (Other)
  Sender: FDA-Public Use
  Company Number: US-PFIZER INC-2008092644

PATIENT
  Sex: Female
  Weight: 82.54 kg

DRUGS (11)
  1. SUTENT [Suspect]
     Indication: OVARIAN CANCER
     Dosage: 12.5 MG, 1X/DAY
     Route: 048
     Dates: start: 20081022, end: 20081022
  2. SUTENT [Suspect]
     Dosage: 25 MG, 1X/DAY
     Route: 048
     Dates: start: 20081022, end: 20081022
  3. AVAPRO [Concomitant]
     Route: 048
  4. COLACE [Concomitant]
     Route: 048
  5. COMPAZINE [Concomitant]
     Route: 048
  6. CYMBALTA [Concomitant]
     Route: 048
  7. MULTI-VITAMINS [Concomitant]
     Dosage: 1 TAB
     Route: 048
  8. PRILOSEC [Concomitant]
     Route: 048
  9. SYNTHROID [Concomitant]
     Route: 048
  10. PYRIDOXINE HYDROCHLORIDE [Concomitant]
     Route: 048
  11. ERGOCALCIFEROL [Concomitant]
     Route: 048

REACTIONS (2)
  - EYELID OEDEMA [None]
  - URTICARIA [None]
